FAERS Safety Report 10177615 (Version 1)
Quarter: 2014Q2

REPORT INFORMATION
  Report Type: Spontaneous
  Country: US (occurrence: US)
  Receive Date: 20140516
  Receipt Date: 20140516
  Transmission Date: 20141212
  Serious: Yes (Other)
  Sender: FDA-Public Use
  Company Number: US-PFIZER INC-2014128339

PATIENT
  Age: 79 Year
  Sex: Male
  Weight: 86.17 kg

DRUGS (10)
  1. CELEBREX [Suspect]
     Dosage: 200 MG, DAILY
     Route: 048
  2. LEVOXYL [Suspect]
     Dosage: 175 UG, DAILY
     Route: 048
  3. LISINOPRIL [Concomitant]
     Dosage: 5 MG, 2X/DAY
     Route: 048
  4. TOPROL XL [Concomitant]
     Dosage: 25 MG, DAILY
     Route: 048
  5. CLOPIDOGREL BISULFATE [Concomitant]
     Dosage: 75 MG, DAILY
     Route: 048
  6. AMBIEN [Concomitant]
     Dosage: 10 MG, DAILY (AT BEDTIME)
     Route: 048
  7. FUROSEMIDE [Concomitant]
     Dosage: 20 MG, DAILY
     Route: 048
  8. OMEPRAZOLE [Concomitant]
     Dosage: 20 MG, DAILY
     Route: 048
  9. WARFARIN SODIUM [Concomitant]
     Dosage: 5 MG, DAILY
     Route: 048
  10. PRAVASTATIN SODIUM [Concomitant]
     Dosage: 40 MG EVERY OTHER DAY
     Route: 048

REACTIONS (2)
  - Pulmonary hypertension [Unknown]
  - Pleural effusion [Unknown]
